FAERS Safety Report 6991272-8 (Version None)
Quarter: 2010Q3

REPORT INFORMATION
  Report Type: 
  Country: None (occurrence: None)
  Receive Date: 20100916
  Receipt Date: 20080924
  Transmission Date: 20110219
  Serious: No
  Sender: FDA-Public Use
  Company Number: US-WYE-H06144508

PATIENT
  Age: 74 Year
  Sex: Female

DRUGS (7)
  1. PREMARIN [Suspect]
     Indication: HOT FLUSH
     Dosage: 0.625 MG DAILY
     Route: 048
     Dates: start: 19730101, end: 20070101
  2. PREMARIN [Suspect]
     Dosage: 0.625MG DAILY
     Route: 048
     Dates: end: 20080801
  3. PREMARIN [Suspect]
     Dosage: ONE TABLET ON MONDAY, WEDNESDAY AND FRIDAY
     Route: 048
     Dates: start: 20080801, end: 20080101
  4. PREMARIN [Suspect]
     Dosage: GRADUALLY GOT DOWN TO ONE TABLET ON MONDAY AND FRIDAY
     Route: 048
     Dates: start: 20080101, end: 20080922
  5. PREMARIN [Suspect]
     Dosage: 0.625MG DAILY
     Route: 048
     Dates: start: 20080922
  6. ACTONEL [Concomitant]
     Indication: OSTEOPOROSIS
     Dosage: ONCE WEEKLY
     Route: 048
     Dates: start: 20080101
  7. SIMVASTATIN [Concomitant]
     Indication: BLOOD CHOLESTEROL
     Dosage: NOT PROVIDED
     Route: 048
     Dates: start: 20080807

REACTIONS (4)
  - ABDOMINAL DISCOMFORT [None]
  - DRUG INEFFECTIVE [None]
  - FEELING ABNORMAL [None]
  - WITHDRAWAL SYNDROME [None]
